FAERS Safety Report 10919281 (Version 1)
Quarter: 2015Q1

REPORT INFORMATION
  Report Type: Spontaneous
  Country: CO (occurrence: CO)
  Receive Date: 20150316
  Receipt Date: 20150316
  Transmission Date: 20150721
  Serious: Yes (Death)
  Sender: FDA-Public Use
  Company Number: CO-TAKEDA-2015MPI001206

PATIENT

DRUGS (1)
  1. VELCADE [Suspect]
     Active Substance: BORTEZOMIB
     Indication: PLASMA CELL MYELOMA
     Dosage: 1.3 ?G/M2, UNK
     Route: 058
     Dates: start: 20140312, end: 20150131

REACTIONS (1)
  - Death [Fatal]

NARRATIVE: CASE EVENT DATE: 20150206
